FAERS Safety Report 6892132-3 (Version None)
Quarter: 2010Q3

REPORT INFORMATION
  Report Type: 
  Country: None (occurrence: None)
  Receive Date: 20100731
  Receipt Date: 20080124
  Transmission Date: 20110219
  Serious: Yes (Hospitalization, Other)
  Sender: FDA-Public Use
  Company Number: US-PFIZER INC-2008008378

PATIENT
  Sex: Female
  Weight: 66.2 kg

DRUGS (4)
  1. NEURONTIN [Suspect]
     Indication: MOOD SWINGS
  2. GABAPENTIN [Suspect]
     Indication: MOOD SWINGS
  3. PROZAC [Concomitant]
  4. WELLBUTRIN [Concomitant]

REACTIONS (6)
  - AMNESIA [None]
  - DEPRESSION [None]
  - DRUG WITHDRAWAL SYNDROME [None]
  - DRY MOUTH [None]
  - FEELING ABNORMAL [None]
  - VISION BLURRED [None]
